FAERS Safety Report 4328079-6 (Version None)
Quarter: 2004Q1

REPORT INFORMATION
  Report Type: 
  Country: None (occurrence: None)
  Receive Date: 20040331
  Receipt Date: 20040305
  Transmission Date: 20041129
  Serious: Yes (Other)
  Sender: FDA-Public Use
  Company Number: JP-ROCHE-361002

PATIENT
  Age: 73 Year
  Sex: Female
  Weight: 65 kg

DRUGS (12)
  1. ROCEPHIN [Suspect]
     Indication: BRONCHITIS
     Dosage: FROMULATION DESCRIBED AS VIAL.
     Route: 041
     Dates: start: 20040213, end: 20040213
  2. ROCEPHIN [Suspect]
     Dosage: FORM REPORTED AS VIAL
     Route: 041
     Dates: start: 20040214, end: 20040220
  3. FLUTICASONE PROPIONATE [Concomitant]
     Indication: ASTHMA
     Route: 055
     Dates: start: 20040217
  4. THEO-DUR [Concomitant]
     Indication: ASTHMA
     Route: 055
     Dates: start: 20040220, end: 20040227
  5. ONON [Concomitant]
     Indication: ASTHMA
     Route: 055
     Dates: start: 20040219, end: 20040225
  6. TAMIFLU [Concomitant]
     Route: 048
     Dates: start: 20040212, end: 20040217
  7. NITOROL R [Concomitant]
     Indication: ANGINA PECTORIS
     Route: 048
  8. ADALAT [Concomitant]
     Indication: HYPERTENSION
     Route: 048
  9. ACINON [Concomitant]
     Route: 048
     Dates: start: 20040215
  10. NEOPHYLLIN [Concomitant]
     Indication: ASTHMA
     Route: 041
     Dates: start: 20040213, end: 20040219
  11. SOLU-MEDROL [Concomitant]
     Indication: ASTHMA
     Dosage: 13 FEB 2004: 80MG ONCE DAILY 14 - 17 FEB: 80MG TWICE DAILY 18 - 19 FEB: 40MG TWICE DAILY 20 FEB 200+
     Route: 041
     Dates: start: 20040213, end: 20040220
  12. PREDONINE [Concomitant]
     Indication: ASTHMA
     Route: 048
     Dates: start: 20040221, end: 20040221

REACTIONS (1)
  - ERYTHEMA MULTIFORME [None]
